FAERS Safety Report 21133932 (Version 1)
Quarter: 2022Q3

REPORT INFORMATION
  Report Type: Spontaneous
  Country: US (occurrence: US)
  Receive Date: 20220726
  Receipt Date: 20220726
  Transmission Date: 20221027
  Serious: No
  Sender: FDA-Public Use
  Company Number: US-OYSTER POINT PHARMA, INC.-2022OYS00450

PATIENT
  Age: 60 Year
  Sex: Female
  Weight: 54.431 kg

DRUGS (4)
  1. TYRVAYA [Suspect]
     Active Substance: VARENICLINE TARTRATE
     Indication: Dry eye
     Dosage: 1 SPRAY IN EACH NOSTRIL, 2X/DAY
     Route: 045
     Dates: start: 20220503, end: 20220505
  2. UNSPECIFIED INGREDIENT [Suspect]
     Active Substance: UNSPECIFIED INGREDIENT
     Dosage: UNK
  3. PANTOPRAZOLE [Concomitant]
     Active Substance: PANTOPRAZOLE
     Dosage: 40 MG, 1X/DAY
  4. LEVOTHYROXINE [Concomitant]
     Active Substance: LEVOTHYROXINE
     Dosage: 100 ?G, 1X/DAY

REACTIONS (4)
  - Pruritus [Recovering/Resolving]
  - Discomfort [Recovering/Resolving]
  - Drug interaction [Recovered/Resolved]
  - Sneezing [Recovering/Resolving]

NARRATIVE: CASE EVENT DATE: 20220503
